FAERS Safety Report 5837747-6 (Version None)
Quarter: 2008Q3

REPORT INFORMATION
  Report Type: 
  Country: None (occurrence: None)
  Receive Date: 20080807
  Receipt Date: 20080731
  Transmission Date: 20090109
  Serious: Yes (Hospitalization, Other)
  Sender: FDA-Public Use
  Company Number: US-MERCK-0808USA00346

PATIENT
  Sex: Female

DRUGS (1)
  1. SINGULAIR [Suspect]
     Route: 048
     Dates: start: 20060101

REACTIONS (8)
  - CRYING [None]
  - DEPRESSION [None]
  - INSOMNIA [None]
  - INTENTIONAL SELF-INJURY [None]
  - NIGHTMARE [None]
  - SLEEP TERROR [None]
  - SOCIAL AVOIDANT BEHAVIOUR [None]
  - SUICIDAL IDEATION [None]
